FAERS Safety Report 6383693-1 (Version None)
Quarter: 2009Q4

REPORT INFORMATION
  Report Type: 
  Country: None (occurrence: None)
  Receive Date: 20091001
  Receipt Date: 20070712
  Transmission Date: 20100525
  Serious: Yes (Other)
  Sender: FDA-Public Use
  Company Number: US-ASTRAZENECA-2006UW14638

PATIENT
  Age: 51 Year
  Sex: Male

DRUGS (9)
  1. SEROQUEL [Suspect]
     Indication: SCHIZOPHRENIA
     Dosage: 200-800 MG
     Route: 048
     Dates: start: 20030422, end: 20050125
  2. SEROQUEL [Suspect]
     Route: 048
     Dates: start: 20030501, end: 20050101
  3. ZYPREXA [Suspect]
     Indication: SCHIZOPHRENIA
     Dates: start: 20011001, end: 20030401
  4. ZYPREXA [Suspect]
     Route: 048
     Dates: start: 20011012, end: 20030527
  5. EFFEXOR XR [Concomitant]
     Dosage: 150-300 MG
     Route: 048
     Dates: start: 20030101, end: 20041123
  6. ABILIFY [Concomitant]
     Indication: HALLUCINATION, AUDITORY
     Dosage: 10-15 MG
     Route: 048
     Dates: start: 20041123
  7. DESYREL [Concomitant]
     Indication: SLEEP DISORDER
     Route: 048
     Dates: start: 20040101
  8. WELLBUTRIN XL [Concomitant]
     Dosage: 150-300 MG
     Route: 048
     Dates: start: 20041123, end: 20060207
  9. LISINOPRIL [Concomitant]
     Dates: start: 20041014

REACTIONS (2)
  - DIABETES MELLITUS [None]
  - DIABETIC NEUROPATHY [None]
